FAERS Safety Report 6836591-0 (Version None)
Quarter: 2010Q3

REPORT INFORMATION
  Report Type: 
  Country: None (occurrence: None)
  Receive Date: 20100713
  Receipt Date: 20100701
  Transmission Date: 20110219
  Serious: Yes (Other)
  Sender: FDA-Public Use
  Company Number: PHHY2010SI44383

PATIENT

DRUGS (2)
  1. ENTACAPONE-LEVODOPA-CARBIDOPA [Suspect]
     Indication: PARKINSON'S DISEASE
     Dosage: UNK
  2. APOMORPHINE [Suspect]
     Indication: PARKINSON'S DISEASE
     Dosage: UNK

REACTIONS (3)
  - ABNORMAL BEHAVIOUR [None]
  - JEALOUS DELUSION [None]
  - PERSECUTORY DELUSION [None]
